FAERS Safety Report 24391599 (Version 2)
Quarter: 2024Q4

REPORT INFORMATION
  Report Type: Spontaneous
  Country: PT (occurrence: PT)
  Receive Date: 20241003
  Receipt Date: 20241028
  Transmission Date: 20250114
  Serious: Yes (Hospitalization)
  Sender: TEVA
  Company Number: PT-TEVA-VS-3247803

PATIENT
  Sex: Female

DRUGS (4)
  1. QUETIAPINE [Suspect]
     Active Substance: QUETIAPINE
     Indication: Mania
     Dosage: DOSE REDUCED FROM 300 MG/DAY
     Route: 065
  2. LORAZEPAM [Suspect]
     Active Substance: LORAZEPAM
     Indication: Mania
     Route: 065
  3. LITHIUM [Suspect]
     Active Substance: LITHIUM
     Indication: Bipolar disorder
     Dosage: FOR MORE THAN 25?YEARS
     Route: 065
  4. CLONAZEPAM [Suspect]
     Active Substance: CLONAZEPAM
     Indication: Mania
     Route: 065

REACTIONS (3)
  - Stress cardiomyopathy [Recovering/Resolving]
  - Toxicity to various agents [Recovering/Resolving]
  - Intentional product misuse [Unknown]
